FAERS Safety Report 4967412-9 (Version None)
Quarter: 2006Q2

REPORT INFORMATION
  Report Type: 
  Country: None (occurrence: None)
  Receive Date: 20060407
  Receipt Date: 20060407
  Transmission Date: 20061013
  Serious: Yes (Other)
  Sender: FDA-Public Use
  Company Number: None

PATIENT
  Age: 14 Year
  Sex: Male
  Weight: 58.9676 kg

DRUGS (6)
  1. TRAZODONE HCL [Suspect]
     Indication: HYPNOTHERAPY
     Dosage: 50 MILLIGRAMS NIGHTLY PO
     Route: 048
     Dates: start: 20060308, end: 20060328
  2. AMPHETAMINE SALTS [Concomitant]
  3. PANTOPRAZOLE [Concomitant]
  4. RISPERIDONE [Concomitant]
  5. SETRALINE [Concomitant]
  6. AMPHETAMINE SALTS XR [Concomitant]

REACTIONS (1)
  - SEDATION [None]
